FAERS Safety Report 14403037 (Version 1)
Quarter: 2018Q1

REPORT INFORMATION
  Report Type: Spontaneous
  Country: US (occurrence: US)
  Receive Date: 20180117
  Receipt Date: 20180117
  Transmission Date: 20180509
  Serious: No
  Sender: FDA-Public Use
  Company Number: US-PERRIGO-17US027305

PATIENT
  Age: 51 Year
  Sex: Male
  Weight: 113.38 kg

DRUGS (2)
  1. PERMETHRIN. [Suspect]
     Active Substance: PERMETHRIN
     Dosage: 60 ML, SINGLE
     Route: 061
     Dates: start: 20171004, end: 20171004
  2. PERMETHRIN. [Suspect]
     Active Substance: PERMETHRIN
     Indication: INFECTION PARASITIC
     Dosage: 60 ML, SINGLE
     Route: 061
     Dates: start: 20171002, end: 20171002

REACTIONS (1)
  - Off label use [Recovered/Resolved]

NARRATIVE: CASE EVENT DATE: 20171002
